FAERS Safety Report 9468393 (Version 1)
Quarter: 2013Q3

REPORT INFORMATION
  Report Type: Spontaneous
  Country: FR (occurrence: FR)
  Receive Date: 20130821
  Receipt Date: 20130821
  Transmission Date: 20140515
  Serious: Yes (Other)
  Sender: FDA-Public Use
  Company Number: PHHY2013FR089974

PATIENT
  Age: 56 Year
  Sex: Female

DRUGS (4)
  1. ROPINIROLE SANDOZ [Suspect]
     Dosage: 8 MG, BID
     Route: 048
     Dates: start: 20130215, end: 20130228
  2. ROPINIROLE TEVA [Suspect]
     Dosage: 10 MG, BID
     Route: 048
     Dates: start: 20130118, end: 20130201
  3. ROPINIROLE TEVA [Suspect]
     Dosage: 2 MG, BID
     Route: 048
     Dates: start: 20130215, end: 20130228
  4. STALEVO [Concomitant]

REACTIONS (3)
  - Tremor [Recovered/Resolved]
  - Musculoskeletal stiffness [Recovered/Resolved]
  - Condition aggravated [Recovered/Resolved]
